FAERS Safety Report 8045447-X (Version None)
Quarter: 2012Q1

REPORT INFORMATION
  Report Type: 
  Country: None (occurrence: None)
  Receive Date: 20120113
  Receipt Date: 20120109
  Transmission Date: 20120608
  Serious: Yes (Disabling)
  Sender: FDA-Public Use
  Company Number: GB-BRISTOL-MYERS SQUIBB COMPANY-16336919

PATIENT
  Age: 74 Year
  Sex: Female

DRUGS (9)
  1. SAXAGLIPTIN [Suspect]
     Indication: DIABETES MELLITUS
     Dosage: FOR } 1 YEAR.
     Route: 048
     Dates: start: 20100901, end: 20111101
  2. GLICLAZIDE [Concomitant]
     Route: 048
     Dates: start: 20111221
  3. CO-DYDRAMOL [Concomitant]
     Dosage: 1DF: 10/500MG.
     Route: 048
     Dates: start: 20080101
  4. PERINDOPRIL [Concomitant]
     Route: 048
     Dates: start: 19930101
  5. SAXAGLIPTIN [Suspect]
     Indication: BLOOD PRESSURE INCREASED
     Dosage: FOR } 1 YEAR.
     Route: 048
     Dates: start: 20100901, end: 20111101
  6. METFORMIN HCL [Concomitant]
     Route: 048
     Dates: start: 20080101, end: 20111101
  7. BENDROFLUAZIDE [Concomitant]
     Route: 048
     Dates: start: 20080101
  8. AMITRIPTYLINE HCL [Concomitant]
     Route: 048
     Dates: start: 20050101
  9. SIMVASTATIN [Concomitant]
     Route: 048
     Dates: start: 20070101

REACTIONS (3)
  - BLOOD CREATININE INCREASED [None]
  - BLOOD UREA INCREASED [None]
  - GLOMERULAR FILTRATION RATE DECREASED [None]
